FAERS Safety Report 8969935 (Version 1)
Quarter: 2012Q4

REPORT INFORMATION
  Report Type: 
  Country: US (occurrence: US)
  Receive Date: 20121218
  Receipt Date: 20121218
  Transmission Date: 20130627
  Serious: Yes (Other)
  Sender: FDA-Public Use
  Company Number: US-BRISTOL-MYERS SQUIBB COMPANY-16227712

PATIENT
  Sex: Female

DRUGS (1)
  1. ABILIFY TABS 5 MG [Suspect]

REACTIONS (5)
  - Urticaria [Unknown]
  - Insomnia [Unknown]
  - Heart rate increased [Unknown]
  - Anxiety [Unknown]
  - Influenza [Unknown]
